FAERS Safety Report 6844419-8 (Version None)
Quarter: 2010Q2

REPORT INFORMATION
  Report Type: 
  Country: None (occurrence: None)
  Receive Date: 20100629
  Receipt Date: 20100319
  Transmission Date: 20101027
  Serious: Yes (Other)
  Sender: FDA-Public Use
  Company Number: US-WYE-H14235710

PATIENT
  Age: 40 Year
  Sex: Female
  Weight: 71.73 kg

DRUGS (5)
  1. PRISTIQ [Suspect]
     Indication: DEPRESSION
     Dosage: 50 MG 1X PER 1 DAY, ORAL
     Route: 048
     Dates: start: 20100318, end: 20100319
  2. XANAX [Concomitant]
  3. AMBIEN [Concomitant]
  4. AUGMENTIN '125' [Concomitant]
  5. PREDNISONE [Concomitant]

REACTIONS (8)
  - BLOOD PRESSURE INCREASED [None]
  - FEELING HOT [None]
  - FEELING JITTERY [None]
  - HEADACHE [None]
  - HEART RATE INCREASED [None]
  - NAUSEA [None]
  - PANIC REACTION [None]
  - PARAESTHESIA [None]
